FAERS Safety Report 9479098 (Version 1)
Quarter: 2013Q3

REPORT INFORMATION
  Report Type: Spontaneous
  Country: US (occurrence: US)
  Receive Date: 20130827
  Receipt Date: 20130827
  Transmission Date: 20140515
  Serious: Yes (Other)
  Sender: FDA-Public Use
  Company Number: US-GLAXOSMITHKLINE-A1039167A

PATIENT
  Age: 57 Year
  Sex: Female

DRUGS (2)
  1. TYKERB [Suspect]
     Indication: BREAST CANCER FEMALE
     Dosage: 250MG UNKNOWN
     Route: 065
  2. XELODA [Concomitant]

REACTIONS (3)
  - Convulsion [Unknown]
  - Metastases to central nervous system [Unknown]
  - Treatment noncompliance [Unknown]
